FAERS Safety Report 4889721-4 (Version None)
Quarter: 2006Q1

REPORT INFORMATION
  Report Type: 
  Country: None (occurrence: None)
  Receive Date: 20060120
  Receipt Date: 20051209
  Transmission Date: 20060701
  Serious: Yes (Other)
  Sender: FDA-Public Use
  Company Number: 8630

PATIENT
  Age: 59 Year
  Sex: Female
  Weight: 47.6277 kg

DRUGS (5)
  1. SEPTOCAINE [Suspect]
     Indication: DENTAL OPERATION
     Dosage: 1 CARPULE  INJECTED
  2. SEPTOCAINE [Suspect]
     Indication: LOCAL ANAESTHESIA
     Dosage: 1 CARPULE  INJECTED
  3. CARBOCAIN [Suspect]
     Indication: DENTAL OPERATION
     Dosage: 1 CARPULE INJECTED
  4. CARBOCAIN [Suspect]
     Indication: LOCAL ANAESTHESIA
     Dosage: 1 CARPULE INJECTED
  5. TOPICAL  ANESTHETIC [Suspect]
     Indication: LOCAL ANAESTHESIA
     Dosage: TOPICAL
     Route: 061

REACTIONS (1)
  - PARAESTHESIA [None]
